FAERS Safety Report 8188270-8 (Version None)
Quarter: 2012Q1

REPORT INFORMATION
  Report Type: 
  Country: None (occurrence: None)
  Receive Date: 20120221
  Receipt Date: 20110602
  Transmission Date: 20120608
  Serious: Yes (Hospitalization)
  Sender: FDA-Public Use
  Company Number: PHHY2011US48801

PATIENT
  Age: 62 Year
  Sex: Male

DRUGS (2)
  1. PULMOZYME [Concomitant]
  2. TOBI [Suspect]
     Dosage: 300 MG, BID, 28 DAYS ON AND 28 DAYS OFF, INHALATION
     Route: 055
     Dates: start: 20110328, end: 20110522

REACTIONS (1)
  - LUNG DISORDER [None]
